FAERS Safety Report 12609625 (Version 1)
Quarter: 2016Q3

REPORT INFORMATION
  Report Type: Report from Study
  Country: DE (occurrence: DE)
  Receive Date: 20160801
  Receipt Date: 20160801
  Transmission Date: 20161109
  Serious: Yes (Hospitalization)
  Sender: FDA-Public Use
  Company Number: DE-ROCHE-1802123

PATIENT
  Age: 3 Year
  Sex: Male

DRUGS (31)
  1. RITUXIMAB [Suspect]
     Active Substance: RITUXIMAB
     Dosage: CYCLE2
     Route: 065
     Dates: start: 20090824, end: 20090829
  2. CYCLOPHOSPHAMIDE. [Suspect]
     Active Substance: CYCLOPHOSPHAMIDE
     Indication: MALIGNANT LYMPHOID NEOPLASM
     Dosage: CYCLE 1
     Route: 065
     Dates: start: 20090801, end: 20090806
  3. CYCLOPHOSPHAMIDE. [Suspect]
     Active Substance: CYCLOPHOSPHAMIDE
     Dosage: CYCLE 5
     Route: 065
     Dates: start: 20091029, end: 20091030
  4. DOXORUBICIN [Suspect]
     Active Substance: DOXORUBICIN
     Dosage: CYCLE 4
     Route: 065
     Dates: start: 20091009, end: 20091014
  5. CYTARABINE. [Suspect]
     Active Substance: CYTARABINE
     Indication: MALIGNANT LYMPHOID NEOPLASM
     Route: 065
     Dates: start: 20091130
  6. MELPHALAN [Suspect]
     Active Substance: MELPHALAN
     Indication: MALIGNANT LYMPHOID NEOPLASM
     Route: 065
     Dates: start: 20091130
  7. CYCLOPHOSPHAMIDE. [Suspect]
     Active Substance: CYCLOPHOSPHAMIDE
     Dosage: CYCLE 2
     Route: 065
     Dates: start: 20090824, end: 20090829
  8. CYCLOPHOSPHAMIDE. [Suspect]
     Active Substance: CYCLOPHOSPHAMIDE
     Dosage: CYCLE 6
     Route: 065
     Dates: start: 20091119, end: 20091120
  9. PREDNISOLONE. [Suspect]
     Active Substance: PREDNISOLONE
     Indication: MALIGNANT LYMPHOID NEOPLASM
     Dosage: CYCLE 1
     Route: 065
     Dates: start: 20090801, end: 20090806
  10. PREDNISOLONE. [Suspect]
     Active Substance: PREDNISOLONE
     Dosage: CYCLE 4
     Route: 065
     Dates: start: 20091009, end: 20091014
  11. CARMUSTINE [Suspect]
     Active Substance: CARMUSTINE
     Indication: MALIGNANT LYMPHOID NEOPLASM
     Route: 065
     Dates: start: 20091130
  12. PREDNISOLONE. [Suspect]
     Active Substance: PREDNISOLONE
     Dosage: CYCLE 3
     Route: 065
     Dates: start: 20090917, end: 20090922
  13. VINCRISTINE [Suspect]
     Active Substance: VINCRISTINE
     Dosage: CYCLE 2
     Route: 065
     Dates: start: 20090824, end: 20090829
  14. DOXORUBICIN [Suspect]
     Active Substance: DOXORUBICIN
     Indication: MALIGNANT LYMPHOID NEOPLASM
     Dosage: CYCLE 1
     Route: 065
     Dates: start: 20090801, end: 20090806
  15. CYCLOPHOSPHAMIDE. [Suspect]
     Active Substance: CYCLOPHOSPHAMIDE
     Dosage: CYCLE 4
     Route: 065
     Dates: start: 20091009, end: 20091014
  16. PREDNISOLONE. [Suspect]
     Active Substance: PREDNISOLONE
     Dosage: CYCLE 5
     Route: 065
     Dates: start: 20091029, end: 20091030
  17. VINCRISTINE [Suspect]
     Active Substance: VINCRISTINE
     Indication: MALIGNANT LYMPHOID NEOPLASM
     Dosage: CYCLE 1
     Route: 065
     Dates: start: 20090801, end: 20090806
  18. DOXORUBICIN [Suspect]
     Active Substance: DOXORUBICIN
     Dosage: CYCLE 5
     Route: 065
     Dates: start: 20091029, end: 20091030
  19. DOXORUBICIN [Suspect]
     Active Substance: DOXORUBICIN
     Dosage: CYCLE 6
     Route: 065
     Dates: start: 20091119, end: 20091120
  20. RITUXIMAB [Suspect]
     Active Substance: RITUXIMAB
     Indication: MALIGNANT LYMPHOID NEOPLASM
     Dosage: CYCLE1
     Route: 065
     Dates: start: 20090801, end: 20090806
  21. RITUXIMAB [Suspect]
     Active Substance: RITUXIMAB
     Dosage: CYCLE3
     Route: 065
     Dates: start: 20090917, end: 20090922
  22. ETOPOSIDE. [Suspect]
     Active Substance: ETOPOSIDE
     Indication: MALIGNANT LYMPHOID NEOPLASM
     Route: 065
     Dates: start: 20091130
  23. PREDNISOLONE. [Suspect]
     Active Substance: PREDNISOLONE
     Dosage: CYCLE 2
     Route: 065
     Dates: start: 20090824, end: 20090829
  24. RITUXIMAB [Suspect]
     Active Substance: RITUXIMAB
     Dosage: CYCLE5
     Route: 065
     Dates: start: 20091029, end: 20091030
  25. DOXORUBICIN [Suspect]
     Active Substance: DOXORUBICIN
     Dosage: CYCLE 3
     Route: 065
     Dates: start: 20090917, end: 20090922
  26. RITUXIMAB [Suspect]
     Active Substance: RITUXIMAB
     Dosage: CYCLE4
     Route: 065
     Dates: start: 20091009, end: 20091014
  27. PREDNISOLONE. [Suspect]
     Active Substance: PREDNISOLONE
     Dosage: CYCLE 6
     Route: 065
     Dates: start: 20091119, end: 20091120
  28. DOXORUBICIN [Suspect]
     Active Substance: DOXORUBICIN
     Dosage: CYCLE 2
     Route: 065
     Dates: start: 20090824, end: 20090829
  29. RITUXIMAB [Suspect]
     Active Substance: RITUXIMAB
     Dosage: CYCLE6
     Route: 065
     Dates: start: 20091119, end: 20091120
  30. DEXAMETHASONE. [Suspect]
     Active Substance: DEXAMETHASONE
     Indication: MALIGNANT LYMPHOID NEOPLASM
     Route: 065
     Dates: start: 20091130
  31. CYCLOPHOSPHAMIDE. [Suspect]
     Active Substance: CYCLOPHOSPHAMIDE
     Dosage: CYCLE 3
     Route: 065
     Dates: start: 20090917, end: 20090922

REACTIONS (7)
  - Gastrointestinal toxicity [Recovered/Resolved]
  - Ileus paralytic [Recovered/Resolved]
  - Gastrointestinal fungal infection [Recovered/Resolved]
  - Bacterial sepsis [Recovered/Resolved]
  - Necrosis [Recovered/Resolved]
  - Intestinal resection [Recovered/Resolved]
  - Small intestinal resection [Recovered/Resolved]

NARRATIVE: CASE EVENT DATE: 20091130
